FAERS Safety Report 6646018-X (Version None)
Quarter: 2010Q1

REPORT INFORMATION
  Report Type: 
  Country: None (occurrence: None)
  Receive Date: 20100323
  Receipt Date: 20100312
  Transmission Date: 20100710
  Serious: Yes (Other)
  Sender: FDA-Public Use
  Company Number: US-PFIZER INC-2010032335

PATIENT
  Sex: Male
  Weight: 104.31 kg

DRUGS (30)
  1. GLIPIZIDE [Suspect]
     Indication: DIABETES MELLITUS
     Dosage: 10 MG, 2X/DAY
     Route: 048
  2. GLIPIZIDE [Suspect]
     Indication: MUSCLE SPASMS
  3. GLIPIZIDE [Suspect]
     Indication: OEDEMA
  4. METFORMIN HCL [Suspect]
     Indication: DIABETES MELLITUS
     Dosage: UNK
     Route: 048
     Dates: end: 20090101
  5. FINASTERIDE [Suspect]
     Indication: OEDEMA
     Dosage: 5 MG, 1X/DAY
     Route: 048
     Dates: start: 20080801
  6. IPRATROPIUM BROMIDE [Suspect]
  7. ACTOS [Suspect]
     Indication: DIABETES MELLITUS
     Dosage: 7.5 MG, 1X/DAY
     Route: 048
     Dates: start: 20090108, end: 20090101
  8. ACTOS [Suspect]
     Dosage: 15 MG, 1X/DAY
     Route: 048
     Dates: start: 20090101, end: 20090101
  9. ACTOS [Suspect]
     Dosage: 15 MG, 2X/DAY
     Route: 048
     Dates: start: 20090401, end: 20090101
  10. ACTOS [Suspect]
     Dosage: 15 MG, 3X/DAY
     Route: 048
     Dates: start: 20090101
  11. SIMVASTATIN [Suspect]
     Indication: BLOOD CHOLESTEROL INCREASED
     Dosage: 40 MG, 1X/DAY
     Route: 048
  12. SIMVASTATIN [Suspect]
     Indication: ALANINE AMINOTRANSFERASE INCREASED
  13. ALBUTEROL SULFATE AUTOHALER [Suspect]
     Indication: RESPIRATORY TRACT INFECTION VIRAL
     Dosage: 4 MG, 3X/DAY
     Route: 048
     Dates: start: 20070301
  14. ALBUTEROL SULFATE AUTOHALER [Suspect]
     Indication: RHINITIS
  15. ALBUTEROL SULFATE AUTOHALER [Suspect]
     Indication: COUGH
  16. ALLOPURINOL [Suspect]
     Indication: HEPATIC ENZYME INCREASED
     Dosage: UNK
     Route: 048
     Dates: start: 20040201
  17. COLCHICINE [Suspect]
     Indication: ALANINE AMINOTRANSFERASE INCREASED
     Dosage: 0.6 MG, UNK
     Route: 048
     Dates: start: 20020301
  18. GLUCOPHAGE [Suspect]
     Dosage: 1 TABLET
     Route: 048
     Dates: start: 20090201
  19. LORATADINE [Suspect]
     Dosage: 10 MG, 1X/DAY
     Route: 048
     Dates: start: 20081101
  20. NASAREL [Suspect]
     Indication: OEDEMA PERIPHERAL
     Dosage: UNK
     Dates: start: 20031201, end: 20061101
  21. OMEPRAZOLE [Suspect]
     Indication: OEDEMA PERIPHERAL
     Dosage: 20 MG, 2X/DAY
     Route: 048
     Dates: start: 20040701
  22. OMEPRAZOLE [Suspect]
     Indication: ALANINE AMINOTRANSFERASE INCREASED
  23. OXYCODONE [Suspect]
     Dosage: 5 MG, UNK
     Dates: start: 20100201
  24. PENTOXIFYLLINE [Suspect]
     Indication: OEDEMA
     Dosage: 400 MG, 2X/DAY
     Route: 048
     Dates: start: 20020501
  25. PENTOXIFYLLINE [Suspect]
     Indication: INFLUENZA
  26. PENTOXIFYLLINE [Suspect]
     Indication: HEPATIC ENZYME INCREASED
  27. RANITIDINE [Suspect]
     Indication: MYALGIA
     Dosage: 300 MG, 3X/DAY
     Route: 048
     Dates: start: 20030901
  28. RANITIDINE [Suspect]
     Indication: LIVER DISORDER
  29. LASIX [Concomitant]
     Indication: FLUID RETENTION
     Dosage: 20 MG, 1X/DAY
     Route: 048
     Dates: end: 20090101
  30. METFORMIN HCL [Concomitant]
     Indication: DIABETES MELLITUS
     Dosage: 2000 MG, UNK
     Route: 048
     Dates: start: 20090101

REACTIONS (8)
  - ALANINE AMINOTRANSFERASE INCREASED [None]
  - BLOOD GLUCOSE INCREASED [None]
  - DRUG EFFECT DECREASED [None]
  - DRUG INEFFECTIVE [None]
  - GINGIVAL DISORDER [None]
  - MUSCLE SPASMS [None]
  - NASOPHARYNGITIS [None]
  - OEDEMA PERIPHERAL [None]
